FAERS Safety Report 5855846-X (Version None)
Quarter: 2008Q3

REPORT INFORMATION
  Report Type: 
  Country: None (occurrence: None)
  Receive Date: 20080825
  Receipt Date: 20071128
  Transmission Date: 20090109
  Serious: No
  Sender: FDA-Public Use
  Company Number: A0696298A

PATIENT
  Age: 49 Year
  Sex: Female

DRUGS (4)
  1. MALARONE [Suspect]
     Indication: MALARIA PROPHYLAXIS
     Dosage: 62.5MG PER DAY
     Route: 048
     Dates: start: 20071114
  2. FLONASE [Concomitant]
  3. RHINOCORT [Concomitant]
  4. PROAIR HFA [Concomitant]

REACTIONS (1)
  - DRUG ADMINISTRATION ERROR [None]
